FAERS Safety Report 6096677-8 (Version None)
Quarter: 2009Q1

REPORT INFORMATION
  Report Type: 
  Country: None (occurrence: None)
  Receive Date: 20090227
  Receipt Date: 20090212
  Transmission Date: 20090719
  Serious: Yes (Life-Threatening, Other)
  Sender: FDA-Public Use
  Company Number: ZM-ABBOTT-09P-189-0559115-00

PATIENT
  Age: 33 Year
  Sex: Female

DRUGS (2)
  1. ALUVIA TABLETS 200MG/50MG [Suspect]
     Indication: HIV INFECTION
     Dosage: 800/200MG: 2 TABLETS TWICE DAILY
     Route: 048
     Dates: start: 20080101
  2. TRUVADA [Concomitant]
     Indication: HIV INFECTION
     Dosage: 300/200 MG DAILY
     Dates: start: 20080101

REACTIONS (1)
  - CD4 LYMPHOCYTES DECREASED [None]
